FAERS Safety Report 11315326 (Version 1)
Quarter: 2015Q3

REPORT INFORMATION
  Report Type: Spontaneous
  Country: GB (occurrence: GB)
  Receive Date: 20150727
  Receipt Date: 20150727
  Transmission Date: 20151125
  Serious: Yes (Death, Hospitalization)
  Sender: FDA-Public Use
  Company Number: GB-HOSPIRA-2357127

PATIENT
  Age: 70 Year
  Sex: Female
  Weight: 80 kg

DRUGS (5)
  1. ULTIVA [Suspect]
     Active Substance: REMIFENTANIL HYDROCHLORIDE
     Indication: ANAESTHESIA
     Dosage: 0.5 MCG/M2; SINGLE
     Route: 042
     Dates: start: 20050127
  2. LEVOTHYROXINE SODIUM. [Concomitant]
     Active Substance: LEVOTHYROXINE SODIUM
     Indication: PRODUCT USED FOR UNKNOWN INDICATION
     Route: 048
  3. HYDROCORTISONE. [Concomitant]
     Active Substance: HYDROCORTISONE
     Indication: PRODUCT USED FOR UNKNOWN INDICATION
     Dosage: DAILY
     Route: 048
  4. PROPOFOL. [Suspect]
     Active Substance: PROPOFOL
     Indication: ANAESTHESIA
     Dosage: ONCE
     Route: 042
     Dates: start: 20050127, end: 20050127
  5. SUXAMETHONIUM [Suspect]
     Active Substance: SUCCINYLCHOLINE
     Indication: ANAESTHESIA
     Dosage: DAILY
     Route: 040
     Dates: start: 20050127

REACTIONS (11)
  - Bradycardia [Unknown]
  - Pulseless electrical activity [Unknown]
  - Acute myocardial infarction [Fatal]
  - Atrioventricular block [Unknown]
  - Bundle branch block left [Unknown]
  - Pneumonia [Fatal]
  - Pulse abnormal [Unknown]
  - Pericardial haemorrhage [Fatal]
  - Hypoxia [Unknown]
  - Ventricular fibrillation [Unknown]
  - Metabolic acidosis [Recovering/Resolving]

NARRATIVE: CASE EVENT DATE: 20050127
